FAERS Safety Report 24955926 (Version 5)
Quarter: 2025Q1

REPORT INFORMATION
  Report Type: Spontaneous
  Country: GR (occurrence: GR)
  Receive Date: 20250211
  Receipt Date: 20250320
  Transmission Date: 20250409
  Serious: No
  Sender: PFIZER
  Company Number: GR-PFIZER INC-PV202500013422

PATIENT
  Age: 9 Year
  Sex: Male
  Weight: 18.3 kg

DRUGS (3)
  1. GENOTROPIN [Suspect]
     Active Substance: SOMATROPIN
     Indication: Short stature
     Dosage: 7 DAYS WITHOUT DAY OFF
     Route: 058
     Dates: start: 202407
  2. LEVOTHYROXINE [Concomitant]
     Active Substance: LEVOTHYROXINE
     Indication: Hypothyroidism
     Dosage: 25 MG, 2X/DAY (EVERY MORNING), 1X2 (MONDAY, WEDNESDAY, FRIDAY)
  3. LEVOTHYROXINE [Concomitant]
     Active Substance: LEVOTHYROXINE
     Dosage: 25 MG, DAILY (EVERY MORNING), 1X1 (TUESDAY, THURSDAY, SATURDAY, SUNDAY)

REACTIONS (2)
  - Device material issue [Unknown]
  - Poor quality device used [Unknown]

NARRATIVE: CASE EVENT DATE: 20250101
